FAERS Safety Report 25207442 (Version 1)
Quarter: 2025Q2

REPORT INFORMATION
  Report Type: Spontaneous
  Country: US (occurrence: None)
  Receive Date: 20250416
  Receipt Date: 20250416
  Transmission Date: 20250716
  Serious: Yes (Hospitalization)
  Sender: FDA-CTU
  Company Number: None

PATIENT
  Sex: Female

DRUGS (2)
  1. OPSUMIT [Suspect]
     Active Substance: MACITENTAN
     Indication: Pulmonary arterial hypertension
     Dosage: 10 MG DAILY ORAL
     Route: 048
     Dates: start: 20220524
  2. REMODULIN [Suspect]
     Active Substance: TREPROSTINIL

REACTIONS (7)
  - Fatigue [None]
  - Fluid retention [None]
  - Peripheral swelling [None]
  - Kidney infection [None]
  - Bladder pain [None]
  - Abdominal pain [None]
  - Blood potassium decreased [None]
